FAERS Safety Report 18376855 (Version 1)
Quarter: 2020Q4

REPORT INFORMATION
  Report Type: Spontaneous
  Country: US (occurrence: US)
  Receive Date: 20201012
  Receipt Date: 20201012
  Transmission Date: 20210114
  Serious: Yes (Death, Other)
  Sender: FDA-Public Use
  Company Number: None

PATIENT
  Age: 46 Year
  Sex: Male
  Weight: 90 kg

DRUGS (1)
  1. PLAQUENIL [Suspect]
     Active Substance: HYDROXYCHLOROQUINE SULFATE
     Indication: RHEUMATOID ARTHRITIS
     Dates: start: 20100101, end: 20121001

REACTIONS (5)
  - Head injury [None]
  - Completed suicide [None]
  - Psychotic disorder [None]
  - Gun shot wound [None]
  - Overdose [None]

NARRATIVE: CASE EVENT DATE: 20121001
